FAERS Safety Report 22110824 (Version 1)
Quarter: 2023Q1

REPORT INFORMATION
  Report Type: Spontaneous
  Country: US (occurrence: US)
  Receive Date: 20230317
  Receipt Date: 20230317
  Transmission Date: 20230418
  Serious: Yes (Disabling)
  Sender: FDA-Public Use
  Company Number: US-TEVA-2023-US-2866981

PATIENT
  Sex: Female

DRUGS (1)
  1. DOCETAXEL [Suspect]
     Active Substance: DOCETAXEL
     Indication: Product used for unknown indication
     Dates: start: 20160723, end: 20161209

REACTIONS (2)
  - Lacrimation increased [Not Recovered/Not Resolved]
  - Lacrimal structure injury [Not Recovered/Not Resolved]
